FAERS Safety Report 11792248 (Version 2)
Quarter: 2016Q1

REPORT INFORMATION
  Report Type: Spontaneous
  Country: FR (occurrence: FR)
  Receive Date: 20151201
  Receipt Date: 20160106
  Transmission Date: 20160525
  Serious: Yes (Other)
  Sender: FDA-Public Use
  Company Number: FR-BAYER-2015-430907

PATIENT
  Age: 23 Year
  Sex: Female

DRUGS (1)
  1. JAYDESS [Suspect]
     Active Substance: LEVONORGESTREL
     Dosage: 14 MCG/24HR, CONT
     Route: 015
     Dates: start: 20150323

REACTIONS (6)
  - Ruptured ectopic pregnancy [None]
  - Pain [None]
  - Drug ineffective [None]
  - Haematosalpinx [None]
  - Ectopic pregnancy with contraceptive device [None]
  - Fungal infection [None]

NARRATIVE: CASE EVENT DATE: 2015
